FAERS Safety Report 6372104-8 (Version None)
Quarter: 2009Q3

REPORT INFORMATION
  Report Type: 
  Country: None (occurrence: None)
  Receive Date: 20090917
  Receipt Date: 20090904
  Transmission Date: 20100115
  Serious: Yes (Death, Hospitalization)
  Sender: FDA-Public Use
  Company Number: ADR19092009

PATIENT
  Sex: Male

DRUGS (3)
  1. SALBUTAMOL            (MFR: UNKNOWN) [Suspect]
     Dosage: INHALATION  USE
     Route: 055
  2. CORTICOSTEROID (UNKNOWN STRENGTH) [Concomitant]
  3. SEREVENT (UNKNOWN STRENGTH) [Concomitant]

REACTIONS (1)
  - DRUG INEFFECTIVE [None]
